FAERS Safety Report 4523785-2 (Version None)
Quarter: 2004Q4

REPORT INFORMATION
  Report Type: 
  Country: None (occurrence: None)
  Receive Date: 20041210
  Receipt Date: 20041210
  Transmission Date: 20050328
  Serious: Yes (Other)
  Sender: FDA-Public Use
  Company Number: None

PATIENT
  Age: 56 Year
  Sex: Male
  Weight: 136.0791 kg

DRUGS (2)
  1. ZOLOFT [Suspect]
     Indication: ANXIETY
     Dosage: 50.MG  1X DAILY  OROPHARINGEAL
     Route: 049
     Dates: start: 20021130, end: 20021224
  2. ZOLOFT [Suspect]
     Indication: DEPRESSION
     Dosage: 50.MG  1X DAILY  OROPHARINGEAL
     Route: 049
     Dates: start: 20021130, end: 20021224

REACTIONS (5)
  - ANXIETY [None]
  - CONDITION AGGRAVATED [None]
  - DEPRESSION [None]
  - DRUG HYPERSENSITIVITY [None]
  - FEELING ABNORMAL [None]
